FAERS Safety Report 13474120 (Version 1)
Quarter: 2017Q2

REPORT INFORMATION
  Report Type: Spontaneous
  Country: US (occurrence: US)
  Receive Date: 20170424
  Receipt Date: 20170424
  Transmission Date: 20170830
  Serious: Yes (Other)
  Sender: FDA-Public Use
  Company Number: US-SA-2016SA135581

PATIENT
  Age: 76 Year
  Sex: Male
  Weight: 97 kg

DRUGS (1)
  1. LOVENOX [Suspect]
     Active Substance: ENOXAPARIN SODIUM
     Route: 051
     Dates: start: 20160718, end: 20160719

REACTIONS (1)
  - Tooth pulp haemorrhage [Recovered/Resolved]

NARRATIVE: CASE EVENT DATE: 20160719
